FAERS Safety Report 10074514 (Version 1)
Quarter: 2014Q2

REPORT INFORMATION
  Report Type: Spontaneous
  Country: US (occurrence: US)
  Receive Date: 20140411
  Receipt Date: 20140411
  Transmission Date: 20141212
  Serious: No
  Sender: FDA-Public Use
  Company Number: US-SA-2013SA117357

PATIENT
  Age: 89 Year
  Sex: Female

DRUGS (2)
  1. ALLEGRA D [Suspect]
     Indication: SINUS DISORDER
     Dosage: DOSE:60/120 MG
     Route: 048
     Dates: start: 20131110
  2. ALL OTHER THERAPEUTIC PRODUCTS [Concomitant]

REACTIONS (3)
  - Fall [Recovered/Resolved]
  - Dizziness [Recovered/Resolved]
  - Extra dose administered [Unknown]
